FAERS Safety Report 5276289-6 (Version None)
Quarter: 2007Q1

REPORT INFORMATION
  Report Type: 
  Country: None (occurrence: None)
  Receive Date: 20070326
  Receipt Date: 20070319
  Transmission Date: 20070707
  Serious: Yes (Hospitalization)
  Sender: FDA-Public Use
  Company Number: IT-ABBOTT-07P-083-0362431-00

PATIENT
  Sex: Female

DRUGS (2)
  1. KALETRA [Suspect]
     Indication: HIV INFECTION
     Route: 048
     Dates: start: 20070208, end: 20070211
  2. TRUVADA [Suspect]
     Indication: HIV INFECTION
     Dates: start: 20070208, end: 20070316

REACTIONS (2)
  - BLOOD PRESSURE DECREASED [None]
  - DIARRHOEA [None]
